FAERS Safety Report 7010627 (Version 2)
Quarter: 2014Q3

REPORT INFORMATION
  Report Type: Spontaneous
  Country: US (occurrence: None)
  Receive Date: 20090526
  Receipt Date: 20140926
  Transmission Date: 20150326
  Serious: Yes (Other)
  Sender: FDA-Public Use
  Company Number: 2009S1004105

PATIENT
  Age: 55 Year
  Sex: Male

DRUGS (10)
  1. SODIUM PHOSPHATE, DIBASIC\SODIUM PHOSPHATE, MONOBASIC, ANHYDROUS [Suspect]
     Active Substance: SODIUM PHOSPHATE, DIBASIC\SODIUM PHOSPHATE, MONOBASIC, ANHYDROUS
     Indication: COLONOSCOPY
     Dosage: PO
     Route: 048
     Dates: start: 200811, end: 200811
  2. LOSARTAN [Concomitant]
     Active Substance: LOSARTAN
  3. TORSEMIDE (TORASEMIDE) [Concomitant]
  4. EPLERENONE. [Concomitant]
     Active Substance: EPLERENONE
  5. NAPROXEN. [Concomitant]
     Active Substance: NAPROXEN
  6. CARVEDILOL. [Concomitant]
     Active Substance: CARVEDILOL
  7. ASPIRIN (ACETYLSALICYLIC ACID) [Concomitant]
     Active Substance: ASPIRIN
  8. LASIX [Concomitant]
     Active Substance: FUROSEMIDE
  9. CLONAZEPAM. [Concomitant]
     Active Substance: CLONAZEPAM
  10. BUPROPION [Concomitant]
     Active Substance: BUPROPION

REACTIONS (14)
  - Haemorrhoids [None]
  - Hepatic steatosis [None]
  - Arthralgia [None]
  - Hernia [None]
  - Abdominal pain [None]
  - Renal failure chronic [None]
  - Fall [None]
  - Polyp [None]
  - Renal cyst [None]
  - Kidney small [None]
  - Hydronephrosis [None]
  - Pelvi-ureteric obstruction [None]
  - Haematochezia [None]
  - Cholelithiasis [None]

NARRATIVE: CASE EVENT DATE: 200901
